FAERS Safety Report 16770221 (Version 1)
Quarter: 2019Q3

REPORT INFORMATION
  Report Type: Spontaneous
  Country: US (occurrence: US)
  Receive Date: 20190904
  Receipt Date: 20190904
  Transmission Date: 20191005
  Serious: Yes (Death)
  Sender: FDA-Public Use
  Company Number: US-IPSEN BIOPHARMACEUTICALS, INC.-2019-15464

PATIENT
  Sex: Female

DRUGS (1)
  1. DYSPORT [Suspect]
     Active Substance: ABOBOTULINUMTOXINA
     Indication: THERAPEUTIC PROCEDURE
     Dosage: NOT REPORTED
     Route: 065
     Dates: start: 20190628, end: 20190628

REACTIONS (1)
  - Seizure like phenomena [Fatal]

NARRATIVE: CASE EVENT DATE: 2019
